FAERS Safety Report 6645744-6 (Version None)
Quarter: 2010Q1

REPORT INFORMATION
  Report Type: 
  Country: None (occurrence: None)
  Receive Date: 20100323
  Receipt Date: 20100310
  Transmission Date: 20100710
  Serious: Yes (Other)
  Sender: FDA-Public Use
  Company Number: JP-ELI_LILLY_AND_COMPANY-JP201001005142

PATIENT
  Sex: Female
  Weight: 42 kg

DRUGS (3)
  1. EVISTA [Suspect]
     Indication: OSTEOPOROSIS
     Dosage: 60 MG, DAILY (1/D)
     Route: 048
     Dates: start: 20070428, end: 20100115
  2. EPADEL [Concomitant]
     Indication: DYSLIPIDAEMIA
     Dosage: 1800 MG, DAILY (1/D)
     Route: 048
     Dates: start: 20070309
  3. ONEALFA [Concomitant]
     Indication: OSTEOPOROSIS
     Dosage: 0.5 UG, DAILY (1/D)
     Route: 048
     Dates: start: 20070328

REACTIONS (1)
  - LIVER DISORDER [None]
